FAERS Safety Report 4989140-6 (Version None)
Quarter: 2006Q2

REPORT INFORMATION
  Report Type: 
  Country: None (occurrence: None)
  Receive Date: 20060425
  Receipt Date: 20060414
  Transmission Date: 20061013
  Serious: Yes (Hospitalization, Other)
  Sender: FDA-Public Use
  Company Number: 2006051143

PATIENT
  Age: 49 Year
  Sex: Female
  Weight: 49.8957 kg

DRUGS (1)
  1. GEODON [Suspect]
     Indication: AFFECTIVE DISORDER
     Dosage: (1 IN 1 D), ORAL
     Route: 048
     Dates: start: 20060401, end: 20060401

REACTIONS (2)
  - CEREBROVASCULAR ACCIDENT [None]
  - PANIC ATTACK [None]
